FAERS Safety Report 14779327 (Version 2)
Quarter: 2018Q2

REPORT INFORMATION
  Report Type: Spontaneous
  Country: EG (occurrence: EG)
  Receive Date: 20180419
  Receipt Date: 20180423
  Transmission Date: 20180711
  Serious: Yes (Death, Other)
  Sender: FDA-Public Use
  Company Number: EG-SA-2018SA107570

PATIENT
  Age: 11 Year
  Sex: Female
  Weight: 25 kg

DRUGS (1)
  1. CEREZYME [Suspect]
     Active Substance: IMIGLUCERASE
     Indication: GAUCHER^S DISEASE TYPE III
     Dosage: DOSE:16 UNIT(S)/KILOGRAM BODYWEIGHT
     Route: 041
     Dates: start: 20160303, end: 20180326

REACTIONS (7)
  - Haematemesis [Fatal]
  - Epistaxis [Fatal]
  - Status epilepticus [Fatal]
  - Thrombocytopenia [Unknown]
  - Off label use [Unknown]
  - Mouth haemorrhage [Fatal]
  - Cyanosis [Fatal]

NARRATIVE: CASE EVENT DATE: 201803
